FAERS Safety Report 18249012 (Version 5)
Quarter: 2020Q4

REPORT INFORMATION
  Report Type: Report from Study
  Country: IT (occurrence: IT)
  Receive Date: 20200909
  Receipt Date: 20201125
  Transmission Date: 20210113
  Serious: Yes (Hospitalization)
  Sender: FDA-Public Use
  Company Number: IT-CELGENEUS-ITA-20200706660

PATIENT
  Age: 60 Year
  Sex: Male
  Weight: 73 kg

DRUGS (27)
  1. OZANIMOD. [Suspect]
     Active Substance: OZANIMOD
     Indication: COLITIS ULCERATIVE
     Dosage: 1 MILLIGRAM
     Route: 048
     Dates: start: 20190704, end: 20200110
  2. IBUPROFEN. [Concomitant]
     Active Substance: IBUPROFEN
     Indication: HEADACHE
     Route: 048
     Dates: start: 20200118, end: 20200119
  3. OZANIMOD. [Suspect]
     Active Substance: OZANIMOD
     Dosage: 1 MILLIGRAM
     Route: 048
     Dates: start: 20200719, end: 20200826
  4. ACITRETIN. [Concomitant]
     Active Substance: ACITRETIN
     Indication: PSORIASIS
     Dosage: 10 MILLIGRAM
     Route: 048
     Dates: start: 20181122
  5. PROPOFOL. [Concomitant]
     Active Substance: PROPOFOL
     Indication: SEDATIVE THERAPY
     Route: 041
     Dates: start: 20200710, end: 20200710
  6. OZANIMOD. [Suspect]
     Active Substance: OZANIMOD
     Dosage: 1 MILLIGRAM
     Route: 048
     Dates: start: 20200909
  7. MESAVANCOL [Concomitant]
     Active Substance: MESALAMINE
     Indication: COLITIS ULCERATIVE
     Dosage: 4800 MILLIGRAM
     Route: 048
     Dates: start: 201707
  8. BETADINE [Concomitant]
     Active Substance: POVIDONE-IODINE
     Indication: SWELLING
     Dosage: 1 APPLICATION
     Route: 061
     Dates: start: 20200109
  9. PARACETAMOL [Concomitant]
     Active Substance: ACETAMINOPHEN
     Indication: PROPHYLAXIS
     Route: 041
     Dates: start: 20190902, end: 20190902
  10. PARACETAMOL [Concomitant]
     Active Substance: ACETAMINOPHEN
     Indication: ANAL FISTULA
     Route: 041
     Dates: start: 20200710, end: 20200710
  11. PARACETAMOL [Concomitant]
     Active Substance: ACETAMINOPHEN
     Dosage: 3 GRAM
     Route: 041
     Dates: start: 20200901, end: 20200902
  12. AMOXICILLIN/CLAVULANATE POTASSIUM [Concomitant]
     Active Substance: AMOXICILLIN\CLAVULANATE POTASSIUM
     Dosage: 2000+ 200 MG
     Route: 041
     Dates: start: 20200903, end: 20200903
  13. ECOVAL [Concomitant]
     Indication: SWELLING
     Dosage: 1 APPLICATION
     Route: 061
     Dates: start: 20200109
  14. UROREC [Concomitant]
     Active Substance: SILODOSIN
     Indication: BENIGN PROSTATIC HYPERPLASIA
     Dosage: 8 MILLIGRAM
     Route: 048
     Dates: start: 201801
  15. OMEPRAZOLE. [Concomitant]
     Active Substance: OMEPRAZOLE
     Dosage: 20 MILLIGRAM
     Route: 048
     Dates: start: 20200711, end: 20200720
  16. REMIFENTANIL [Concomitant]
     Active Substance: REMIFENTANIL
     Indication: SEDATIVE THERAPY
     Dosage: 0.08 MCG/KG/MIN
     Route: 041
     Dates: start: 20200710, end: 20200710
  17. AMOXICILLIN/CLAVULANATE POTASSIUM [Concomitant]
     Active Substance: AMOXICILLIN\CLAVULANATE POTASSIUM
     Dosage: 2000+ 200 MG
     Route: 041
     Dates: start: 20200904, end: 20200904
  18. OMEPRAZOLE. [Concomitant]
     Active Substance: OMEPRAZOLE
     Indication: PROPHYLAXIS
     Route: 048
     Dates: start: 20200710, end: 20200710
  19. PARACETAMOL [Concomitant]
     Active Substance: ACETAMINOPHEN
     Dosage: 1 GRAM
     Route: 041
     Dates: start: 20200903, end: 20200904
  20. U-LIFE 40 [Concomitant]
     Indication: PSORIASIS
     Route: 061
     Dates: start: 20191224
  21. PARACETAMOL [Concomitant]
     Active Substance: ACETAMINOPHEN
     Indication: PROCEDURAL PAIN
     Dosage: 1 GRAM
     Route: 048
     Dates: start: 20200302, end: 20200803
  22. AMOXICILLIN/CLAVULANATE POTASSIUM [Concomitant]
     Active Substance: AMOXICILLIN\CLAVULANATE POTASSIUM
     Indication: PYREXIA
     Dosage: 2000+ 200 MG
     Route: 041
     Dates: start: 20200902, end: 20200902
  23. OZANIMOD. [Suspect]
     Active Substance: OZANIMOD
     Dosage: 1 MILLIGRAM
     Route: 048
     Dates: start: 20200120, end: 20200707
  24. ECERAMOL 311 [Concomitant]
     Indication: PSORIASIS
     Route: 061
     Dates: start: 20191224
  25. CORTIMENT [Concomitant]
     Indication: COLITIS ULCERATIVE
     Dosage: 4.5 MILLIGRAM
     Route: 048
     Dates: start: 20200301, end: 20200415
  26. PROPOFOL. [Concomitant]
     Active Substance: PROPOFOL
     Route: 041
     Dates: start: 20200710, end: 20200710
  27. PARACETAMOL [Concomitant]
     Active Substance: ACETAMINOPHEN
     Route: 041
     Dates: start: 20200831, end: 20200831

REACTIONS (3)
  - Anal abscess [Recovered/Resolved]
  - Anal abscess [Recovered/Resolved]
  - Anal abscess [Recovered/Resolved]

NARRATIVE: CASE EVENT DATE: 20200425
